FAERS Safety Report 19828280 (Version 1)
Quarter: 2021Q3

REPORT INFORMATION
  Report Type: Report from Study
  Country: None (occurrence: US)
  Receive Date: 20210914
  Receipt Date: 20210914
  Transmission Date: 20211014
  Serious: Yes (Hospitalization, Other)
  Sender: FDA-Public Use
  Company Number: US-ABBVIE-21K-163-4075979-00

PATIENT
  Sex: Female

DRUGS (1)
  1. IMBRUVICA [Suspect]
     Active Substance: IBRUTINIB
     Indication: PRODUCT USED FOR UNKNOWN INDICATION
     Route: 048

REACTIONS (6)
  - COVID-19 [Recovered/Resolved]
  - Blood glucose increased [Recovering/Resolving]
  - Micturition urgency [Recovering/Resolving]
  - Bone pain [Recovered/Resolved]
  - Pollakiuria [Recovering/Resolving]
  - Surgery [Recovering/Resolving]
